FAERS Safety Report 6794045-4 (Version None)
Quarter: 2010Q2

REPORT INFORMATION
  Report Type: 
  Country: None (occurrence: None)
  Receive Date: 20100624
  Receipt Date: 20040609
  Transmission Date: 20101027
  Serious: No
  Sender: FDA-Public Use
  Company Number: US-PFIZER INC-23100200

PATIENT
  Age: 66 Year
  Sex: Male

DRUGS (26)
  1. ARGATROBAN [Suspect]
  2. AMIODARONE HCL [Concomitant]
  3. BENZTROPINE MESYLATE [Concomitant]
  4. CALCIUM CHLORIDE [Concomitant]
  5. DOPAMINE HCL [Concomitant]
  6. INSULIN [Concomitant]
  7. IPATROPIUM BROMIDE [Concomitant]
  8. ALBUTEROL [Concomitant]
  9. NITROGLYCERIN [Concomitant]
  10. PROCRIT [Concomitant]
  11. TYLENOL [Concomitant]
  12. ALTAPLASE [Concomitant]
  13. CLONIDINE [Concomitant]
  14. BENADRYL [Concomitant]
  15. DOBUTAMINE HCL [Concomitant]
  16. EPTFIBAMIDE [Concomitant]
  17. FUROSEMIDE [Concomitant]
  18. LABETALOL HCL [Concomitant]
  19. MORPHINE [Concomitant]
  20. VALSARTAN [Concomitant]
  21. FLUCONAZOLE [Concomitant]
  22. VANCOMYCIN [Concomitant]
  23. WARFARIN SODIUM [Concomitant]
  24. ZOSYN [Concomitant]
  25. LEVAQUIN [Concomitant]
  26. BACTRIM [Concomitant]

REACTIONS (1)
  - NEUROPATHY PERIPHERAL [None]
